FAERS Safety Report 5515642-X (Version None)
Quarter: 2007Q4

REPORT INFORMATION
  Report Type: 
  Country: None (occurrence: None)
  Receive Date: 20071113
  Receipt Date: 20070720
  Transmission Date: 20080405
  Serious: No
  Sender: FDA-Public Use
  Company Number: A0665372A

PATIENT
  Age: 64 Year
  Sex: Female

DRUGS (5)
  1. COREG [Suspect]
     Indication: LEFT VENTRICULAR DYSFUNCTION
     Dosage: 6.25MG PER DAY
     Route: 048
     Dates: start: 20061001
  2. COREG CR [Suspect]
     Indication: LEFT VENTRICULAR DYSFUNCTION
     Dosage: 10MG PER DAY
     Route: 048
     Dates: start: 20070716
  3. CARDIZEM [Concomitant]
  4. COZAAR [Concomitant]
  5. LASIX [Concomitant]

REACTIONS (2)
  - DRUG INEFFECTIVE [None]
  - ORTHOSTATIC HYPERTENSION [None]
